FAERS Safety Report 14604954 (Version 3)
Quarter: 2018Q3

REPORT INFORMATION
  Report Type: Spontaneous
  Country: ES (occurrence: ES)
  Receive Date: 20180306
  Receipt Date: 20180807
  Transmission Date: 20181010
  Serious: Yes (Death, Hospitalization, Other)
  Sender: FDA-Public Use
  Company Number: ES-PFIZER INC-2018068128

PATIENT
  Age: 90 Year
  Sex: Female

DRUGS (14)
  1. METHOTREXATE SODIUM. [Suspect]
     Active Substance: METHOTREXATE SODIUM
     Indication: RHEUMATOID ARTHRITIS
     Dosage: 2.5 MG 2 TABLETS A WEEK
     Route: 048
     Dates: start: 2017, end: 20180205
  2. ACENOCUMAROL [Concomitant]
     Active Substance: ACENOCOUMAROL
     Dosage: 1 MG, DAILY
  3. LOSARTAN. [Concomitant]
     Active Substance: LOSARTAN
     Dosage: 25 MG 1?0?0
  4. FUROSEMIDE. [Concomitant]
     Active Substance: FUROSEMIDE
     Dosage: 40 MG 1?0?0
  5. LINAGLIPTIN [Concomitant]
     Active Substance: LINAGLIPTIN
     Dosage: 5 MG, DAILY (1?0?0)
  6. PREDNISONE. [Concomitant]
     Active Substance: PREDNISONE
     Dosage: 5MG 1?0?0
  7. LEVOTHYROXINE. [Concomitant]
     Active Substance: LEVOTHYROXINE
     Dosage: 50 MCG 1?0?0
  8. FEROGRADUMET [Concomitant]
  9. AMOXICILLIN?CLAVULANIC ACID [Suspect]
     Active Substance: AMOXICILLIN\CLAVULANIC ACID
  10. NEBIVOLOL. [Concomitant]
     Active Substance: NEBIVOLOL
     Dosage: 5 MG 1/4?0?0
  11. INSULIN NOVOMIX 30 [Concomitant]
     Dosage: 8?12?4
  12. RANITIDINE. [Concomitant]
     Active Substance: RANITIDINE
     Dosage: 150 MG EVERY 12H
  13. DUPHALAC [Concomitant]
     Active Substance: LACTULOSE
     Dosage: IF ACCURATE
  14. FOLIC ACID. [Concomitant]
     Active Substance: FOLIC ACID
     Dosage: 5 MG, UNK

REACTIONS (8)
  - Renal failure [Unknown]
  - Pancytopenia [Fatal]
  - Vomiting [Unknown]
  - Mucosal inflammation [Unknown]
  - Hyperglycaemia [Unknown]
  - Bronchitis [Fatal]
  - Respiratory failure [Fatal]
  - Diarrhoea [Unknown]

NARRATIVE: CASE EVENT DATE: 20180113
